FAERS Safety Report 7285018-6 (Version None)
Quarter: 2011Q1

REPORT INFORMATION
  Report Type: 
  Country: None (occurrence: None)
  Receive Date: 20110210
  Receipt Date: 20110202
  Transmission Date: 20110831
  Serious: Yes (Other)
  Sender: FDA-Public Use
  Company Number: FR-BAXTER-2011BH002864

PATIENT
  Age: 2 Year
  Sex: Male

DRUGS (2)
  1. GAMMAGARD LIQUID [Suspect]
     Route: 042
     Dates: start: 20101223, end: 20101223
  2. GAMMAGARD LIQUID [Suspect]
     Indication: IDIOPATHIC THROMBOCYTOPENIC PURPURA
     Route: 042
     Dates: start: 20101222, end: 20101222

REACTIONS (4)
  - HYPERTHERMIA [None]
  - VOMITING [None]
  - HYPERTENSION [None]
  - HEADACHE [None]
